FAERS Safety Report 11252568 (Version 1)
Quarter: 2015Q3

REPORT INFORMATION
  Report Type: Spontaneous
  Country: US (occurrence: None)
  Receive Date: 20150707
  Receipt Date: 20150707
  Transmission Date: 20151125
  Serious: Yes (Death, Hospitalization)
  Sender: FDA-Public Use
  Company Number: INS201506-000281

PATIENT
  Age: 63 Year
  Sex: Female

DRUGS (1)
  1. SUBSYS [Suspect]
     Active Substance: FENTANYL
     Indication: BREAKTHROUGH PAIN
     Dates: start: 20150325, end: 20150608

REACTIONS (3)
  - Colon cancer metastatic [None]
  - Pneumonia [None]
  - Malignant neoplasm progression [None]

NARRATIVE: CASE EVENT DATE: 20150616
